FAERS Safety Report 17669626 (Version 1)
Quarter: 2020Q2

REPORT INFORMATION
  Report Type: Spontaneous
  Country: US (occurrence: US)
  Receive Date: 20200415
  Receipt Date: 20200415
  Transmission Date: 20200713
  Serious: Yes (Hospitalization, Other)
  Sender: FDA-Public Use
  Company Number: US-AMGEN-USASP2020057802

PATIENT
  Age: 68 Year
  Sex: Female

DRUGS (8)
  1. ASPIRIN [ACETYLSALICYLIC ACID] [Suspect]
     Active Substance: ASPIRIN
     Indication: THROMBOCYTOSIS
  2. DARBEPOETIN ALFA [Suspect]
     Active Substance: DARBEPOETIN ALFA
     Indication: ANAEMIA
     Route: 065
  3. ASPIRIN [ACETYLSALICYLIC ACID] [Suspect]
     Active Substance: ASPIRIN
     Indication: ANAEMIA
     Route: 065
  4. HYDROXYUREA. [Suspect]
     Active Substance: HYDROXYUREA
     Indication: THROMBOCYTOSIS
  5. RUXOLITINIB [Concomitant]
     Active Substance: RUXOLITINIB
  6. HYDROXYUREA. [Suspect]
     Active Substance: HYDROXYUREA
     Indication: ANAEMIA
     Route: 065
  7. DARBEPOETIN ALFA [Suspect]
     Active Substance: DARBEPOETIN ALFA
     Indication: THROMBOCYTOSIS
  8. AZACITIDINE. [Concomitant]
     Active Substance: AZACITIDINE

REACTIONS (3)
  - Myeloproliferative neoplasm [Unknown]
  - Drug ineffective for unapproved indication [Unknown]
  - Off label use [Unknown]
